FAERS Safety Report 9529819 (Version 1)
Quarter: 2013Q3

REPORT INFORMATION
  Report Type: Spontaneous
  Country: AT (occurrence: AT)
  Receive Date: 20130917
  Receipt Date: 20130917
  Transmission Date: 20140515
  Serious: Yes (Other)
  Sender: FDA-Public Use
  Company Number: PHHY2013AT100499

PATIENT
  Age: 16 Year
  Sex: Female

DRUGS (5)
  1. AZATHIOPRINE [Suspect]
     Indication: CROHN^S DISEASE
     Dosage: UNK UKN, UNK
     Dates: end: 201103
  2. METHOTREXATE [Suspect]
     Indication: CROHN^S DISEASE
     Dosage: UNK UKN, UNK
     Dates: start: 201010, end: 201109
  3. CICLOSPORIN [Suspect]
     Indication: CROHN^S DISEASE
     Dosage: UNK UKN, UNK
     Dates: start: 201110
  4. INFLIXIMAB [Suspect]
     Indication: CROHN^S DISEASE
     Dosage: UNK UKN, UNK
     Dates: start: 201103
  5. ADALIMUMAB [Suspect]
     Indication: CROHN^S DISEASE
     Dosage: UNK UKN, UNK
     Dates: start: 201108, end: 201111

REACTIONS (10)
  - Cholangitis sclerosing [Unknown]
  - Colitis [Not Recovered/Not Resolved]
  - Diarrhoea [Not Recovered/Not Resolved]
  - Haematochezia [Unknown]
  - Gastroenteritis [Not Recovered/Not Resolved]
  - Transaminases increased [Unknown]
  - Jaundice [Not Recovered/Not Resolved]
  - Pruritus [Not Recovered/Not Resolved]
  - Arthralgia [Not Recovered/Not Resolved]
  - Drug ineffective [Not Recovered/Not Resolved]
